FAERS Safety Report 6772624-8 (Version None)
Quarter: 2010Q2

REPORT INFORMATION
  Report Type: 
  Country: None (occurrence: None)
  Receive Date: 20100616
  Receipt Date: 20090429
  Transmission Date: 20101027
  Serious: No
  Sender: FDA-Public Use
  Company Number: US-ASTRAZENECA-2009UW10705

PATIENT
  Age: 81 Year
  Sex: Male

DRUGS (9)
  1. PULMICORT FLEXHALER [Suspect]
     Indication: ASTHMA
     Dosage: 1 PUFF
     Route: 055
  2. PULMICORT FLEXHALER [Suspect]
     Dosage: 2 PUFFS
     Route: 055
  3. PULMICORT FLEXHALER [Suspect]
     Dosage: 1 PUFF
     Route: 055
     Dates: start: 20081101
  4. PULMICORT FLEXHALER [Suspect]
     Dosage: 3 PUFFS
     Route: 055
     Dates: start: 20081101
  5. ALBUTEROL [Concomitant]
  6. LISINOPRIL AND HYDROCHLOROTHIAZIDE [Concomitant]
  7. DILTIAZEM [Concomitant]
  8. FLOMAX [Concomitant]
  9. HYDROXYUREA [Concomitant]

REACTIONS (2)
  - CHEST DISCOMFORT [None]
  - DYSPNOEA [None]
